FAERS Safety Report 5706594-8 (Version None)
Quarter: 2008Q2

REPORT INFORMATION
  Report Type: 
  Country: None (occurrence: None)
  Receive Date: 20080414
  Receipt Date: 20011024
  Transmission Date: 20081010
  Serious: Yes (Death, Life-Threatening, Disabling)
  Sender: FDA-Public Use
  Company Number: 2001IC000123

PATIENT
  Age: 52 Year
  Sex: Male
  Weight: 77 kg

DRUGS (9)
  1. ANCOTIL (FLUCYTOSINE) [Suspect]
     Indication: ASPERGILLOSIS
     Dosage: 2.5 GM; IV, 3.75 GM; IV, 2.5 GM; IV
     Route: 042
     Dates: start: 20001218, end: 20001231
  2. ANCOTIL (FLUCYTOSINE) [Suspect]
     Indication: ASPERGILLOSIS
     Dosage: 2.5 GM; IV, 3.75 GM; IV, 2.5 GM; IV
     Route: 042
     Dates: start: 20010101, end: 20010104
  3. ANCOTIL (FLUCYTOSINE) [Suspect]
     Indication: ASPERGILLOSIS
     Dosage: 2.5 GM; IV, 3.75 GM; IV, 2.5 GM; IV
     Route: 042
     Dates: start: 20010105, end: 20010106
  4. AMPHOTERICIN B [Suspect]
     Indication: ASPERGILLOSIS
     Dosage: 35 MG; IV, 45 MG; IV, 55 MG; IV
     Route: 042
     Dates: start: 20001218, end: 20001218
  5. AMPHOTERICIN B [Suspect]
     Indication: ASPERGILLOSIS
     Dosage: 35 MG; IV, 45 MG; IV, 55 MG; IV
     Route: 042
     Dates: start: 20001219, end: 20001219
  6. AMPHOTERICIN B [Suspect]
     Indication: ASPERGILLOSIS
     Dosage: 35 MG; IV, 45 MG; IV, 55 MG; IV
     Route: 042
     Dates: start: 20001220, end: 20010106
  7. UNSPECIFIED ANTIBIOTIC (NO PREF. NAME) [Suspect]
     Indication: ASPERGILLOSIS
  8. CORTICOSTEROID NOS (CORTICOSTEROID NOS) [Suspect]
     Indication: ASPERGILLOSIS
  9. FLUCONAZOLE [Concomitant]

REACTIONS (5)
  - ATRIAL FIBRILLATION [None]
  - COLLAPSE OF LUNG [None]
  - MULTI-ORGAN FAILURE [None]
  - OESOPHAGEAL ULCER [None]
  - SINUS BRADYCARDIA [None]
